FAERS Safety Report 8885848 (Version 1)
Quarter: 2012Q4

REPORT INFORMATION
  Report Type: 
  Country: CA (occurrence: CA)
  Receive Date: 20121101
  Receipt Date: 20121101
  Transmission Date: 20130627
  Serious: Yes (Hospitalization)
  Sender: FDA-Public Use
  Company Number: PHMT2006CA01553

PATIENT
  Age: 62 Year
  Sex: Female

DRUGS (6)
  1. SANDOSTATIN LAR [Suspect]
     Indication: COLON CANCER
     Dosage: 20 mg, every 4 weeks
     Dates: start: 20050520
  2. ATIVAN [Concomitant]
  3. CHEMOTHERAPEUTICS,OTHER [Concomitant]
  4. OXYCONTIN [Concomitant]
  5. PANTOLOC ^SOLVAY^ [Concomitant]
  6. ZOFRAN [Concomitant]

REACTIONS (5)
  - Dehydration [Unknown]
  - Blood pressure decreased [Unknown]
  - Blood pressure systolic increased [Unknown]
  - Fatigue [Unknown]
  - Heart rate increased [Unknown]
